FAERS Safety Report 23911827 (Version 1)
Quarter: 2024Q2

REPORT INFORMATION
  Report Type: Report from Study
  Country: US (occurrence: US)
  Receive Date: 20240528
  Receipt Date: 20240528
  Transmission Date: 20240716
  Serious: Yes (Other)
  Sender: FDA-Public Use
  Company Number: US-BAYER-2024A072666

PATIENT
  Age: 67 Year
  Sex: Male

DRUGS (3)
  1. NUBEQA [Suspect]
     Active Substance: DAROLUTAMIDE
     Indication: Prostate cancer
     Dosage: 300 MG, QD
     Dates: start: 20240406
  2. NUBEQA [Suspect]
     Active Substance: DAROLUTAMIDE
     Indication: Prostate cancer
     Dosage: 600 MG, QD
  3. NUBEQA [Suspect]
     Active Substance: DAROLUTAMIDE
     Indication: Prostate cancer
     Dosage: 900 MG, QD

REACTIONS (6)
  - Hallucination [Unknown]
  - Pollakiuria [Unknown]
  - Dizziness [Unknown]
  - Abnormal dreams [Unknown]
  - Fatigue [Unknown]
  - Off label use [None]

NARRATIVE: CASE EVENT DATE: 20240406
